FAERS Safety Report 6329002-5 (Version None)
Quarter: 2009Q3

REPORT INFORMATION
  Report Type: 
  Country: None (occurrence: None)
  Receive Date: 20090826
  Receipt Date: 20090824
  Transmission Date: 20100115
  Serious: No
  Sender: FDA-Public Use
  Company Number: US-B.I. PHARMACEUTICALS,INC./RIDGEFIELD-2009-BP-09999BP

PATIENT
  Age: 51 Year
  Sex: Female

DRUGS (6)
  1. FLOMAX [Suspect]
     Indication: URINARY RETENTION
     Dosage: 0.4 MG
     Route: 048
     Dates: start: 20050101
  2. FENTANYL [Concomitant]
     Indication: FIBROMYALGIA
  3. FLEXERIL [Concomitant]
     Indication: FIBROMYALGIA
  4. DIAZIDE [Concomitant]
     Indication: HYPERTENSION
  5. PROVACHOL [Concomitant]
     Indication: BLOOD CHOLESTEROL INCREASED
  6. KLONOPIN [Concomitant]
     Indication: SLEEP DISORDER

REACTIONS (2)
  - DRUG EFFECT DECREASED [None]
  - RESIDUAL URINE [None]
